FAERS Safety Report 17582168 (Version 6)
Quarter: 2020Q2

REPORT INFORMATION
  Report Type: Spontaneous
  Country: US (occurrence: US)
  Receive Date: 20200325
  Receipt Date: 20200624
  Transmission Date: 20200713
  Serious: Yes (Other)
  Sender: FDA-Public Use
  Company Number: US-CELGENEUS-USA-20200307310

PATIENT
  Sex: Female
  Weight: 74.91 kg

DRUGS (3)
  1. REVLIMID [Suspect]
     Active Substance: LENALIDOMIDE
     Indication: PLASMA CELL MYELOMA
     Dosage: 25 MILLIGRAM
     Route: 048
     Dates: start: 20181009
  2. REVLIMID [Suspect]
     Active Substance: LENALIDOMIDE
     Dosage: 25 MILLIGRAM
     Route: 048
     Dates: start: 201812
  3. REVLIMID [Suspect]
     Active Substance: LENALIDOMIDE
     Dosage: 20 MILLIGRAM
     Route: 048
     Dates: start: 201811

REACTIONS (12)
  - Upper-airway cough syndrome [Not Recovered/Not Resolved]
  - Sinus disorder [Not Recovered/Not Resolved]
  - Dizziness [Not Recovered/Not Resolved]
  - Nail disorder [Not Recovered/Not Resolved]
  - Peripheral swelling [Unknown]
  - Neuropathy peripheral [Not Recovered/Not Resolved]
  - Dry skin [Not Recovered/Not Resolved]
  - Glaucoma [Not Recovered/Not Resolved]
  - Skin discolouration [Not Recovered/Not Resolved]
  - Headache [Unknown]
  - Rhinorrhoea [Unknown]
  - Fall [Unknown]
